FAERS Safety Report 13674742 (Version 1)
Quarter: 2017Q2

REPORT INFORMATION
  Report Type: Spontaneous
  Country: US (occurrence: US)
  Receive Date: 20170621
  Receipt Date: 20170621
  Transmission Date: 20170830
  Serious: No
  Sender: FDA-Public Use
  Company Number: US-PFIZER INC-2017268781

PATIENT
  Age: 86 Year
  Sex: Female
  Weight: 52.16 kg

DRUGS (1)
  1. ADVIL [Suspect]
     Active Substance: IBUPROFEN
     Indication: ARTHRITIS
     Dosage: 200 MG, AS NEEDED

REACTIONS (3)
  - Abdominal discomfort [Unknown]
  - Pain [Unknown]
  - Drug ineffective [Unknown]
